FAERS Safety Report 7310751-7 (Version None)
Quarter: 2011Q1

REPORT INFORMATION
  Report Type: 
  Country: None (occurrence: None)
  Receive Date: 20110224
  Receipt Date: 20110216
  Transmission Date: 20110831
  Serious: Yes (Hospitalization)
  Sender: FDA-Public Use
  Company Number: CH-NOVOPROD-323663

PATIENT
  Age: 87 Year
  Sex: Female

DRUGS (4)
  1. LEVEMIR [Suspect]
     Indication: DIABETES MELLITUS
     Dosage: 16 U, QD
     Route: 058
  2. LASIX [Concomitant]
     Dosage: 40 MG, QD
  3. DILATREND [Concomitant]
     Dosage: 12.5 MG (BID)
  4. MEPHANOL [Concomitant]
     Dosage: 300 MG, QD

REACTIONS (2)
  - URINARY TRACT INFECTION [None]
  - HYPOGLYCAEMIA [None]
